FAERS Safety Report 12203966 (Version 2)
Quarter: 2016Q2

REPORT INFORMATION
  Report Type: Spontaneous
  Country: IT (occurrence: IT)
  Receive Date: 20160323
  Receipt Date: 20160401
  Transmission Date: 20160815
  Serious: Yes (Hospitalization)
  Sender: FDA-Public Use
  Company Number: IT-TEVA-644582ACC

PATIENT
  Age: 42 Year
  Sex: Male

DRUGS (10)
  1. DELORAZEPAM ALTER - 2 MG [Concomitant]
     Dosage: 1 DOSAGE FORMS DAILY;
  2. RISPERIDONE. [Concomitant]
     Active Substance: RISPERIDONE
  3. DEPAKIN CHRONO - 30 CPR 500 MG R.P. [Concomitant]
     Dosage: 2 DOSAGE FORMS DAILY;
  4. DELORAZEPAM [Suspect]
     Active Substance: DELORAZEPAM
     Indication: ANXIETY
     Dosage: 10 MG TOTAL
     Dates: start: 20160208, end: 20160208
  5. DEPAKIN CHRONO - COMPRESSE RIVESTITE 300 MG - SANOFI S.P.A. [Suspect]
     Active Substance: VALPROIC ACID
     Indication: BIPOLAR DISORDER
     Dosage: 5 G TOTAL
     Route: 048
     Dates: start: 20160208, end: 20160208
  6. RISPERIDONE. [Suspect]
     Active Substance: RISPERIDONE
     Indication: BIPOLAR DISORDER
     Dosage: 32 MG TOTAL
     Route: 048
     Dates: start: 20160208, end: 20160208
  7. CARDIRENE - 75 MG POLVERE PER SOLUZIONE ORALE - SANOFI S.P.A. [Suspect]
     Active Substance: ASPIRIN DL-LYSINE
     Indication: PAIN
     Dosage: 375 MG TOTAL
     Route: 048
     Dates: start: 20160208, end: 20160208
  8. PROPRANOLOL HYDROCHLORIDE 40MG [Concomitant]
     Dosage: 1 DOSAGE FORMS DAILY;
  9. CARDIRENE - 75 MG [Concomitant]
     Dosage: 1 DOSAGE FORMS DAILY;
  10. CARBOLITHIUM - 150 MG [Concomitant]
     Dosage: 150 MILLIGRAM DAILY;

REACTIONS (3)
  - Psychomotor retardation [Recovered/Resolved]
  - Sopor [Recovered/Resolved]
  - Overdose [Recovered/Resolved]

NARRATIVE: CASE EVENT DATE: 20160208
